FAERS Safety Report 14168033 (Version 1)
Quarter: 2017Q4

REPORT INFORMATION
  Report Type: Spontaneous
  Country: US (occurrence: US)
  Receive Date: 20171107
  Receipt Date: 20171107
  Transmission Date: 20180321
  Serious: No
  Sender: FDA-Public Use
  Company Number: US-SA-2017SA162827

PATIENT
  Age: 61 Year
  Sex: Female

DRUGS (2)
  1. SOLOSTAR [Suspect]
     Active Substance: DEVICE
     Indication: DIABETES MELLITUS
     Dates: start: 201702
  2. TOUJEO [Suspect]
     Active Substance: INSULIN GLARGINE
     Indication: DIABETES MELLITUS
     Dosage: DOSE:58 UNIT(S)
     Route: 051
     Dates: start: 201702

REACTIONS (10)
  - Nausea [Unknown]
  - Decreased appetite [Unknown]
  - Product use issue [Unknown]
  - Fatigue [Unknown]
  - Visual impairment [Unknown]
  - Memory impairment [Unknown]
  - Malaise [Unknown]
  - Abdominal pain upper [Unknown]
  - Blood glucose increased [Unknown]
  - Vomiting [Unknown]
